FAERS Safety Report 7529355-6 (Version None)
Quarter: 2011Q2

REPORT INFORMATION
  Report Type: 
  Country: None (occurrence: None)
  Receive Date: 20110607
  Receipt Date: 20110529
  Transmission Date: 20111010
  Serious: Yes (Other)
  Sender: FDA-Public Use
  Company Number: JP-JNJFOC-20040506637

PATIENT
  Age: 30 Year
  Sex: Male

DRUGS (3)
  1. PEPCID AC [Suspect]
     Indication: PRODUCT USED FOR UNKNOWN INDICATION
     Route: 048
  2. CANDESARTAN CILEXETIL [Suspect]
     Indication: PRODUCT USED FOR UNKNOWN INDICATION
     Route: 048
     Dates: start: 20030726, end: 20030826
  3. PEPCID AC [Suspect]
     Route: 048

REACTIONS (1)
  - RHABDOMYOLYSIS [None]
